FAERS Safety Report 4442670-8 (Version None)
Quarter: 2004Q3

REPORT INFORMATION
  Report Type: 
  Country: None (occurrence: None)
  Receive Date: 20040903
  Receipt Date: 20040714
  Transmission Date: 20050211
  Serious: Yes (Other)
  Sender: FDA-Public Use
  Company Number: 2004UW12836

PATIENT
  Age: 61 Year
  Sex: Female
  Weight: 68.0396 kg

DRUGS (4)
  1. CRESTOR [Suspect]
     Dosage: 10 M G QD PO
     Route: 048
  2. BENICAR [Concomitant]
  3. ZYRTEC [Concomitant]
  4. ACIPHEX [Concomitant]

REACTIONS (1)
  - AMNESIA [None]
